FAERS Safety Report 16274129 (Version 1)
Quarter: 2019Q2

REPORT INFORMATION
  Report Type: Spontaneous
  Country: US (occurrence: US)
  Receive Date: 20190506
  Receipt Date: 20190506
  Transmission Date: 20190711
  Serious: Yes (Other)
  Sender: FDA-Public Use
  Company Number: US-ASSERTIO THERAPEUTICS, INC.-US-2019DEP000404

PATIENT
  Sex: Female

DRUGS (2)
  1. GRALISE [Suspect]
     Active Substance: GABAPENTIN
     Indication: NEUROPATHY PERIPHERAL
  2. GRALISE [Suspect]
     Active Substance: GABAPENTIN
     Indication: PAIN
     Dosage: 1800 MG, TID
     Route: 065

REACTIONS (6)
  - Drug titration error [Unknown]
  - Product use in unapproved indication [Unknown]
  - Wrong technique in product usage process [Unknown]
  - Gastric bypass [Unknown]
  - Suicidal ideation [Unknown]
  - Overdose [Unknown]

NARRATIVE: CASE EVENT DATE: 201807
